FAERS Safety Report 10525818 (Version 3)
Quarter: 2015Q2

REPORT INFORMATION
  Report Type: Report from Study
  Country: BR (occurrence: BR)
  Receive Date: 20141017
  Receipt Date: 20150424
  Transmission Date: 20150821
  Serious: No
  Sender: FDA-Public Use
  Company Number: PHHY2014BR129288

PATIENT
  Age: 91 Year
  Sex: Female

DRUGS (10)
  1. ZIDER [Suspect]
     Active Substance: MEMANTINE HYDROCHLORIDE
     Indication: PRODUCT USED FOR UNKNOWN INDICATION
     Dosage: 2 DF, DAILY
     Route: 065
  2. DONAREN [Concomitant]
     Active Substance: TRAZODONE HYDROCHLORIDE
     Indication: DEPRESSION
     Dosage: 1 DF, QD
     Route: 048
  3. LEPONEX [Suspect]
     Active Substance: CLOZAPINE
     Dosage: 75 MG, QD
     Route: 065
  4. CITALOPRAM [Concomitant]
     Active Substance: CITALOPRAM HYDROBROMIDE
     Indication: PRODUCT USED FOR UNKNOWN INDICATION
     Dosage: 1 DF, QD
     Route: 048
  5. EXELON PATCH [Suspect]
     Active Substance: RIVASTIGMINE
     Indication: DEMENTIA ALZHEIMER^S TYPE
     Dosage: 13.3 MG, QD (27MG/15CM2)
     Route: 062
     Dates: start: 200908
  6. EXODUS [Suspect]
     Active Substance: ESCITALOPRAM OXALATE
     Indication: MENTAL DISORDER
     Dosage: 1 DF, QD
     Route: 065
  7. VONAU [Suspect]
     Active Substance: ONDANSETRON HYDROCHLORIDE
     Indication: VOMITING
     Dosage: 1 DF, PRN
     Route: 065
  8. LEPONEX [Suspect]
     Active Substance: CLOZAPINE
     Indication: INSOMNIA
     Dosage: 15 MG, QD
     Route: 065
  9. LEPONEX [Suspect]
     Active Substance: CLOZAPINE
     Dosage: 100 MG, QD
     Route: 065
  10. LEPONEX [Suspect]
     Active Substance: CLOZAPINE
     Dosage: 50 MG, QD
     Route: 065

REACTIONS (4)
  - Anaemia [Recovered/Resolved]
  - Off label use [None]
  - Urinary tract infection [Recovering/Resolving]
  - Renal failure [None]

NARRATIVE: CASE EVENT DATE: 20150420
